FAERS Safety Report 17561363 (Version 1)
Quarter: 2020Q1

REPORT INFORMATION
  Report Type: Spontaneous
  Country: IT (occurrence: IT)
  Receive Date: 20200319
  Receipt Date: 20200319
  Transmission Date: 20200409
  Serious: Yes (Other)
  Sender: FDA-Public Use
  Company Number: NVSC2020IT078201

PATIENT
  Age: 33 Year
  Sex: Male
  Weight: 70 kg

DRUGS (1)
  1. NILOTINIB [Suspect]
     Active Substance: NILOTINIB
     Indication: CHRONIC LEUKAEMIA
     Dosage: 800 MG
     Route: 048
     Dates: start: 20190403

REACTIONS (1)
  - Keratosis pilaris [Not Recovered/Not Resolved]

NARRATIVE: CASE EVENT DATE: 20191018
